APPROVED DRUG PRODUCT: DELESTROGEN
Active Ingredient: ESTRADIOL VALERATE
Strength: 40MG/ML **Federal Register determination that product was not discontinued or withdrawn for safety or effectiveness reasons**
Dosage Form/Route: INJECTABLE;INJECTION
Application: N009402 | Product #003
Applicant: PH HEALTH LTD
Approved: Approved Prior to Jan 1, 1982 | RLD: Yes | RS: No | Type: DISCN